FAERS Safety Report 6869740-9 (Version None)
Quarter: 2010Q3

REPORT INFORMATION
  Report Type: 
  Country: None (occurrence: None)
  Receive Date: 20100722
  Receipt Date: 20080923
  Transmission Date: 20110219
  Serious: Yes (Other)
  Sender: FDA-Public Use
  Company Number: US-PFIZER INC-2008067923

PATIENT
  Sex: Male
  Weight: 75.8 kg

DRUGS (1)
  1. CHANTIX [Suspect]
     Indication: TOBACCO ABUSE

REACTIONS (4)
  - AGITATION [None]
  - DEPRESSION [None]
  - DISORIENTATION [None]
  - MENTAL STATUS CHANGES [None]
